FAERS Safety Report 12381025 (Version 1)
Quarter: 2016Q2

REPORT INFORMATION
  Report Type: Report from Study
  Country: CA (occurrence: CA)
  Receive Date: 20160518
  Receipt Date: 20160518
  Transmission Date: 20160815
  Serious: Yes (Death, Hospitalization, Other)
  Sender: FDA-Public Use
  Company Number: CA-BAYER-2015-008692

PATIENT
  Age: 64 Year
  Sex: Female
  Weight: 73.92 kg

DRUGS (21)
  1. ADEMPAS [Suspect]
     Active Substance: RIOCIGUAT
     Indication: PULMONARY HYPERTENSION
     Dosage: 1.5 MG, TID
     Route: 048
  2. COUMADIN [Concomitant]
     Active Substance: WARFARIN SODIUM
  3. FUROSEMIDE [FUROSEMIDE SODIUM] [Concomitant]
     Dosage: 40MG 1 TABLET AN A HALF, BID
     Route: 048
  4. VITAMIN D [Concomitant]
     Active Substance: CHOLECALCIFEROL
     Dosage: 1000JUI 1 TABLET/WEEK,
  5. PROCYCLIDINE [Concomitant]
     Active Substance: PROCYCLIDINE
     Dosage: 2.5 MG 3 TABLETS BID,
  6. PMS-CLONAZEPAM [Concomitant]
     Active Substance: CLONAZEPAM
     Dosage: 1 DF, BID
  7. PMS DOCUSATE SODIUM [Concomitant]
     Dosage: 100 MG 2 CAPSULES AM,
  8. CITALOPRAM [Concomitant]
     Active Substance: CITALOPRAM HYDROBROMIDE
     Dosage: 10 MG 1 TABLET AM,
  9. ADEMPAS [Suspect]
     Active Substance: RIOCIGUAT
     Indication: PULMONARY HYPERTENSION
     Dosage: 2 MG, TID
     Route: 048
  10. OXYCODONE [Concomitant]
     Active Substance: OXYCODONE
     Dosage: 20 MG, BID
  11. RIVACOCET [Concomitant]
     Dosage: 325 MG, Q4HR
  12. OXYCODONE [Concomitant]
     Active Substance: OXYCODONE
     Dosage: 10 MG, HS
  13. PANTOPRAZOLE [Concomitant]
     Active Substance: PANTOPRAZOLE SODIUM
     Dosage: 1 TABLET AM,
  14. GRAVOL [Concomitant]
     Active Substance: DIMENHYDRINATE
     Dosage: 50 MG, TID IF NEEDED
  15. SALBUTAMOL [Concomitant]
     Active Substance: ALBUTEROL
     Dosage: QID IF NEEDED,
  16. ZANTAC [Concomitant]
     Active Substance: RANITIDINE HYDROCHLORIDE
  17. ADEMPAS [Suspect]
     Active Substance: RIOCIGUAT
     Indication: PULMONARY HYPERTENSION
     Dosage: 1 MG, TID
     Route: 048
     Dates: start: 20150116
  18. RIVA K 20 [Concomitant]
     Dosage: 1500 MG 2 TABLETS AM
  19. ADEMPAS [Suspect]
     Active Substance: RIOCIGUAT
     Indication: PULMONARY HYPERTENSION
     Dosage: 2.5 MG, TID
     Route: 048
  20. RISPERIDONE. [Concomitant]
     Active Substance: RISPERIDONE
     Dosage: 4 MG 1 TABLET HS,
  21. ACETAMINOPHEN. [Concomitant]
     Active Substance: ACETAMINOPHEN
     Dosage: 500 MG, QID

REACTIONS (23)
  - Dizziness [None]
  - Fatigue [None]
  - Headache [Recovered/Resolved]
  - Peripheral swelling [None]
  - Palpitations [None]
  - Nausea [Recovered/Resolved]
  - Pneumonia [Not Recovered/Not Resolved]
  - Fluid retention [None]
  - Weight increased [Not Recovered/Not Resolved]
  - Death [Fatal]
  - Dyspnoea [None]
  - Haemoptysis [None]
  - Dyspnoea [None]
  - Asthenia [None]
  - Influenza [None]
  - Pneumonia [None]
  - Dizziness [Recovered/Resolved]
  - Abdominal distension [None]
  - Fatigue [Recovered/Resolved]
  - Peripheral swelling [None]
  - Epistaxis [None]
  - Angina unstable [Recovered/Resolved]
  - Chest pain [Recovered/Resolved]

NARRATIVE: CASE EVENT DATE: 20150116
